FAERS Safety Report 7054069-9 (Version None)
Quarter: 2010Q4

REPORT INFORMATION
  Report Type: 
  Country: None (occurrence: None)
  Receive Date: 20101020
  Receipt Date: 20101012
  Transmission Date: 20110411
  Serious: Yes (Other)
  Sender: FDA-Public Use
  Company Number: CA-BAYER-201022089NA

PATIENT
  Age: 58 Year
  Sex: Male
  Weight: 215 kg

DRUGS (3)
  1. CIPRO [Suspect]
     Indication: PROSTATITIS
     Dosage: TOTAL DAILY DOSE: 1000 MG  UNIT DOSE: 500 MG
     Route: 048
  2. ADALAT [Concomitant]
     Indication: HYPERTENSION
     Route: 065
     Dates: start: 20070101
  3. DIOVAN [Concomitant]
     Indication: HYPERTENSION
     Route: 065

REACTIONS (8)
  - ABDOMINAL DISTENSION [None]
  - ASTHENIA [None]
  - DECREASED APPETITE [None]
  - DRUG TOXICITY [None]
  - FEELING ABNORMAL [None]
  - HYPERTENSION [None]
  - MALAISE [None]
  - NAUSEA [None]
